FAERS Safety Report 8349273-3 (Version None)
Quarter: 2012Q2

REPORT INFORMATION
  Report Type: 
  Country: None (occurrence: None)
  Receive Date: 20120510
  Receipt Date: 20120507
  Transmission Date: 20120825
  Serious: Yes (Hospitalization, Other)
  Sender: FDA-Public Use
  Company Number: PHHY2012AR039180

PATIENT
  Age: 77 Year
  Sex: Female

DRUGS (1)
  1. DIOVAN HCT [Suspect]
     Indication: HYPERTENSION
     Dosage: 80/12.5 MG, UNK
     Dates: start: 20110301

REACTIONS (12)
  - HAEMATOCHEZIA [None]
  - BACK PAIN [None]
  - HEART RATE DECREASED [None]
  - UNRESPONSIVE TO STIMULI [None]
  - POLLAKIURIA [None]
  - FEELING HOT [None]
  - BRONCHITIS [None]
  - URINARY INCONTINENCE [None]
  - GAIT DISTURBANCE [None]
  - NECK PAIN [None]
  - URINE OUTPUT INCREASED [None]
  - ANGINA UNSTABLE [None]
